FAERS Safety Report 9709358 (Version 2)
Quarter: 2013Q4

REPORT INFORMATION
  Report Type: Report from Study
  Country: DE (occurrence: DE)
  Receive Date: 20131126
  Receipt Date: 20131209
  Transmission Date: 20140711
  Serious: Yes (Hospitalization)
  Sender: FDA-Public Use
  Company Number: DE-ROCHE-1305880

PATIENT
  Age: 52 Year
  Sex: Male

DRUGS (7)
  1. BEVACIZUMAB [Suspect]
     Indication: NON-SMALL CELL LUNG CANCER
     Route: 042
     Dates: start: 20130430, end: 20131105
  2. BEVACIZUMAB [Suspect]
     Dosage: MAINTAINENECE THERAPY
     Route: 042
     Dates: start: 201307
  3. ZOMETA [Concomitant]
     Indication: METASTASES TO BONE
     Route: 042
     Dates: start: 20130311
  4. PANTOPRAZOL [Concomitant]
     Indication: PROPHYLAXIS AGAINST GASTROINTESTINAL ULCER
     Route: 048
     Dates: start: 201202
  5. CLEXANE [Concomitant]
     Route: 058
     Dates: start: 20130410
  6. CARBOPLATIN [Concomitant]
     Indication: NON-SMALL CELL LUNG CANCER METASTATIC
     Route: 065
     Dates: start: 201303, end: 201306
  7. PACLITAXEL [Concomitant]
     Indication: NON-SMALL CELL LUNG CANCER METASTATIC
     Route: 065
     Dates: start: 201303, end: 201306

REACTIONS (2)
  - Colitis [Unknown]
  - Haematochezia [Unknown]
